FAERS Safety Report 13167052 (Version 1)
Quarter: 2017Q1

REPORT INFORMATION
  Report Type: Spontaneous
  Country: US (occurrence: US)
  Receive Date: 20170126
  Receipt Date: 20170126
  Transmission Date: 20170428
  Serious: Yes (Life-Threatening, Hospitalization, Disabling)
  Sender: FDA-Public Use
  Company Number: None

PATIENT
  Age: 59 Year
  Sex: Male
  Weight: 67.5 kg

DRUGS (7)
  1. CARVEDIL [Concomitant]
     Active Substance: CARVEDILOL
  2. SOVALDI [Suspect]
     Active Substance: SOFOSBUVIR
     Indication: HEPATITIS C
     Dosage: ?          QUANTITY:1 TABLET(S);?
     Route: 048
     Dates: start: 20140501, end: 20140606
  3. RIBAVIRIN. [Suspect]
     Active Substance: RIBAVIRIN
  4. LACTULOSE. [Concomitant]
     Active Substance: LACTULOSE
  5. XANAX [Concomitant]
     Active Substance: ALPRAZOLAM
  6. LASIX [Concomitant]
     Active Substance: FUROSEMIDE
  7. MORPHINE [Concomitant]
     Active Substance: MORPHINE

REACTIONS (3)
  - Chest pain [None]
  - Oedema [None]
  - Myocardial infarction [None]

NARRATIVE: CASE EVENT DATE: 20150225
